FAERS Safety Report 6634488-2 (Version None)
Quarter: 2010Q1

REPORT INFORMATION
  Report Type: 
  Country: None (occurrence: None)
  Receive Date: 20100315
  Receipt Date: 20100301
  Transmission Date: 20100710
  Serious: Yes (Other)
  Sender: FDA-Public Use
  Company Number: US-ROCHE-688951

PATIENT
  Age: 37 Year
  Sex: Female

DRUGS (4)
  1. CAPECITABINE [Suspect]
     Indication: BREAST CANCER
     Route: 065
  2. CYCLOPHOSPHAMIDE [Suspect]
     Indication: BREAST CANCER
     Route: 065
  3. DOXORUBICIN [Suspect]
     Indication: BREAST CANCER
     Route: 065
  4. PACLITAXEL [Suspect]
     Indication: BREAST CANCER
     Route: 065

REACTIONS (1)
  - ACUTE MYELOID LEUKAEMIA [None]
